FAERS Safety Report 5873851-4 (Version None)
Quarter: 2008Q3

REPORT INFORMATION
  Report Type: 
  Country: None (occurrence: None)
  Receive Date: 20080829
  Receipt Date: 20080822
  Transmission Date: 20090109
  Serious: Yes (Other)
  Sender: FDA-Public Use
  Company Number: 2008SP015513

PATIENT
  Age: 70 Year
  Sex: Female
  Weight: 80 kg

DRUGS (3)
  1. DESLORATADINE [Suspect]
     Indication: BRONCHITIS
     Dosage: 1000 UNK QD PO
     Route: 048
     Dates: start: 20080527
  2. CLARITHROMYCIN [Suspect]
     Indication: BRONCHITIS
     Dosage: 500 MG QD PO
     Route: 048
     Dates: start: 20080527, end: 20080605
  3. PULMONARY NASAL SPRAY [Concomitant]

REACTIONS (1)
  - DEAFNESS [None]
